FAERS Safety Report 21642921 (Version 3)
Quarter: 2022Q4

REPORT INFORMATION
  Report Type: Spontaneous
  Country: US (occurrence: US)
  Receive Date: 20221125
  Receipt Date: 20221226
  Transmission Date: 20230112
  Serious: No
  Sender: FDA-Public Use
  Company Number: US-002147023-NVSC2022US265083

PATIENT
  Sex: Male

DRUGS (2)
  1. MEKINIST [Suspect]
     Active Substance: TRAMETINIB DIMETHYL SULFOXIDE
     Indication: Gallbladder cancer
     Dosage: 2 MG, QD
     Route: 048
     Dates: start: 202210
  2. TAFINLAR [Suspect]
     Active Substance: DABRAFENIB MESYLATE
     Indication: Gallbladder cancer
     Dosage: 150 MG, BID
     Route: 048
     Dates: start: 202210

REACTIONS (8)
  - Pyrexia [Unknown]
  - Rash [Unknown]
  - Headache [Unknown]
  - Fatigue [Unknown]
  - Decreased appetite [Unknown]
  - Chills [Unknown]
  - Pain [Unknown]
  - Product use in unapproved indication [Unknown]
